FAERS Safety Report 4667740-0 (Version None)
Quarter: 2005Q2

REPORT INFORMATION
  Report Type: 
  Country: None (occurrence: None)
  Receive Date: 20050520
  Receipt Date: 20050323
  Transmission Date: 20051028
  Serious: Yes (Hospitalization, Other)
  Sender: FDA-Public Use
  Company Number: US-GLAXOSMITHKLINE-A0551022A

PATIENT
  Age: 62 Year
  Sex: Female

DRUGS (3)
  1. LAMICTAL [Suspect]
     Indication: BIPOLAR DISORDER
     Route: 048
     Dates: start: 20050101, end: 20050101
  2. KEFLEX [Suspect]
     Dates: start: 20050310
  3. BLEPH-10 [Suspect]
     Dates: start: 20050310

REACTIONS (15)
  - BLOOD CREATININE INCREASED [None]
  - DYSPHAGIA [None]
  - DYSPNOEA [None]
  - EYE DISCHARGE [None]
  - LIP EXFOLIATION [None]
  - LIP ULCERATION [None]
  - MUCOUS MEMBRANE DISORDER [None]
  - PURULENT DISCHARGE [None]
  - PYREXIA [None]
  - RASH [None]
  - RASH MACULO-PAPULAR [None]
  - RASH VESICULAR [None]
  - RESPIRATORY DISTRESS [None]
  - STEVENS-JOHNSON SYNDROME [None]
  - SWELLING FACE [None]
